FAERS Safety Report 4502485-9 (Version None)
Quarter: 2004Q3

REPORT INFORMATION
  Report Type: 
  Country: None (occurrence: None)
  Receive Date: 20040928
  Receipt Date: 20040628
  Transmission Date: 20050211
  Serious: No
  Sender: FDA-Public Use
  Company Number: 04P-163-0264926-00

PATIENT
  Age: 60 Year
  Sex: Male

DRUGS (4)
  1. HUMIRA [Suspect]
     Indication: RHEUMATOID ARTHRITIS
     Dosage: 40 MG, 1 IN 2 WK, SUBCUTANEOUS
     Route: 058
     Dates: start: 20040604, end: 20040624
  2. ARTHROTEC [Concomitant]
  3. METHOTREXATE [Concomitant]
  4. ESOMEPRAZOLE [Concomitant]

REACTIONS (1)
  - HERPES ZOSTER [None]
